FAERS Safety Report 16328000 (Version 1)
Quarter: 2019Q2

REPORT INFORMATION
  Report Type: Spontaneous
  Country: US (occurrence: US)
  Receive Date: 20190518
  Receipt Date: 20190518
  Transmission Date: 20190711
  Serious: Yes (Hospitalization)
  Sender: FDA-Public Use
  Company Number: US-ROCHE-2319543

PATIENT
  Age: 69 Year
  Sex: Male
  Weight: 73.4 kg

DRUGS (2)
  1. RITUXAN [Suspect]
     Active Substance: RITUXIMAB
     Indication: NECROTISING MYOSITIS
     Route: 065
     Dates: start: 201812
  2. RITUXAN [Suspect]
     Active Substance: RITUXIMAB
     Indication: NECROTISING MYOSITIS
     Route: 065
     Dates: start: 20190501

REACTIONS (5)
  - Pulseless electrical activity [Recovering/Resolving]
  - Off label use [Unknown]
  - Cardiogenic shock [Recovering/Resolving]
  - Intentional product use issue [Unknown]
  - Cardiac arrest [Recovering/Resolving]

NARRATIVE: CASE EVENT DATE: 201904
